FAERS Safety Report 5771694-3 (Version None)
Quarter: 2008Q2

REPORT INFORMATION
  Report Type: 
  Country: None (occurrence: None)
  Receive Date: 20080613
  Receipt Date: 20080611
  Transmission Date: 20081010
  Serious: Yes (Other)
  Sender: FDA-Public Use
  Company Number: MA-BRISTOL-MYERS SQUIBB COMPANY-14148902

PATIENT
  Age: 65 Year
  Sex: Male
  Weight: 63 kg

DRUGS (3)
  1. BARACLUDE [Suspect]
     Indication: HEPATITIS B
     Dosage: DECREASED TO 0.5MG/D ON 29-APR-08
     Route: 048
     Dates: start: 20080203
  2. SOTALOL HCL [Concomitant]
     Route: 048
  3. KARDEGIC [Concomitant]
     Indication: EXTRASYSTOLES
     Route: 048

REACTIONS (3)
  - ASTHENIA [None]
  - CHOLESTASIS [None]
  - JAUNDICE [None]
